FAERS Safety Report 8110513-7 (Version None)
Quarter: 2012Q1

REPORT INFORMATION
  Report Type: 
  Country: None (occurrence: None)
  Receive Date: 20120202
  Receipt Date: 20111028
  Transmission Date: 20120608
  Serious: Yes (Hospitalization, Other)
  Sender: FDA-Public Use
  Company Number: PHEH2011US012988

PATIENT
  Sex: Female

DRUGS (1)
  1. GILENYA [Suspect]
     Indication: MULTIPLE SCLEROSIS
     Dosage: 0.5 MG, (1X28), DAILY
     Route: 048
     Dates: start: 20111027

REACTIONS (6)
  - THROMBOSIS [None]
  - VISION BLURRED [None]
  - HEADACHE [None]
  - MULTIPLE SCLEROSIS RELAPSE [None]
  - PULMONARY EMBOLISM [None]
  - GAIT DISTURBANCE [None]
